FAERS Safety Report 9805931 (Version 1)
Quarter: 2014Q1

REPORT INFORMATION
  Report Type: Spontaneous
  Country: US (occurrence: None)
  Receive Date: 20140108
  Receipt Date: 20140108
  Transmission Date: 20141002
  Serious: Yes (Hospitalization)
  Sender: FDA-Public Use
  Company Number: None

PATIENT
  Age: 63 Year
  Sex: Male
  Weight: 186.4 kg

DRUGS (2)
  1. NAPROXEN [Suspect]
     Indication: MITRAL VALVE REPLACEMENT
     Dates: end: 20130907
  2. WARFARIN [Suspect]
     Route: 048
     Dates: start: 20130124

REACTIONS (8)
  - Melaena [None]
  - Anaemia [None]
  - Abdominal pain [None]
  - Dizziness [None]
  - Nausea [None]
  - Retching [None]
  - International normalised ratio increased [None]
  - Gastrointestinal haemorrhage [None]
